FAERS Safety Report 9682172 (Version 4)
Quarter: 2015Q2

REPORT INFORMATION
  Report Type: Report from Study
  Country: ES (occurrence: ES)
  Receive Date: 20131111
  Receipt Date: 20150422
  Transmission Date: 20150821
  Serious: Yes (Death, Hospitalization)
  Sender: FDA-Public Use
  Company Number: ES-ROCHE-1083565

PATIENT
  Age: 63 Year
  Sex: Male
  Weight: 77 kg

DRUGS (13)
  1. CAPTOPRIL. [Concomitant]
     Active Substance: CAPTOPRIL
     Route: 065
     Dates: start: 20120514
  2. ASTUDAL [Concomitant]
     Route: 065
     Dates: start: 20120514
  3. OPTOVITE B12 [Concomitant]
     Dosage: 1 INJECTION/9 WEEKS
     Route: 065
     Dates: start: 20120814
  4. IBUPROFEN. [Concomitant]
     Active Substance: IBUPROFEN
     Dosage: TOTAL DAILY DOSE:PRN
     Route: 065
  5. OMEPRAZOLE. [Concomitant]
     Active Substance: OMEPRAZOLE
     Route: 065
     Dates: start: 20120514
  6. FOLI DOCE [Concomitant]
     Dosage: 1 TABLET
     Route: 065
     Dates: start: 20120514
  7. BEVACIZUMAB [Suspect]
     Active Substance: BEVACIZUMAB
     Indication: LUNG NEOPLASM MALIGNANT
     Dosage: DATE OF LAST DOSE PRIOR TO SAE: 16/AUG/2012
     Route: 042
     Dates: start: 20120521
  8. FOLIDAN [Concomitant]
     Route: 065
     Dates: start: 20120514
  9. AIRTAL [Concomitant]
     Route: 065
     Dates: start: 20120514
  10. MYCOSTATIN [Concomitant]
     Active Substance: NYSTATIN
     Dosage: TOTAL DAILY DOSE:6 CC
     Route: 065
     Dates: start: 20120514
  11. TORECAN [Concomitant]
     Active Substance: THIETHYLPERAZINE MALATE
     Route: 065
     Dates: start: 20120514
  12. PEMETREXED [Suspect]
     Active Substance: PEMETREXED
     Indication: LUNG NEOPLASM MALIGNANT
     Dosage: LAST DOSE PRIOR TO SAE: 16/AUG/2012
     Route: 042
     Dates: start: 20120521
  13. ROMILAR (SPAIN) [Concomitant]
     Dosage: TOTAL DAILY DOSE 30 CC
     Route: 065
     Dates: start: 20120514

REACTIONS (3)
  - Respiratory tract infection [Recovered/Resolved]
  - Diarrhoea [Recovered/Resolved]
  - Myocardial ischaemia [Fatal]

NARRATIVE: CASE EVENT DATE: 20120615
